FAERS Safety Report 4919489-4 (Version None)
Quarter: 2006Q1

REPORT INFORMATION
  Report Type: 
  Country: None (occurrence: None)
  Receive Date: 20060222
  Receipt Date: 20060210
  Transmission Date: 20060701
  Serious: Yes (Hospitalization)
  Sender: FDA-Public Use
  Company Number: US-MERCK-0602USA03994

PATIENT
  Age: 80 Year
  Sex: Male
  Weight: 82 kg

DRUGS (12)
  1. VIOXX [Suspect]
     Indication: ARTHRITIS
     Route: 048
     Dates: start: 20030101, end: 20041001
  2. ACETAMINOPHEN AND HYDROCODONE BITARTRATE [Concomitant]
     Route: 065
  3. LANOXIN [Concomitant]
     Route: 065
  4. DILTIAZEM HYDROCHLORIDE [Concomitant]
     Route: 065
  5. PLAVIX [Concomitant]
     Route: 065
  6. COZAAR [Concomitant]
     Route: 065
  7. LEVOXYL [Concomitant]
     Route: 065
  8. LORAZEPAM [Concomitant]
     Route: 065
  9. ADVAIR DISKUS 100/50 [Concomitant]
     Route: 065
  10. NEXIUM [Concomitant]
     Route: 065
  11. ALLEGRA [Concomitant]
     Route: 065
  12. NORVASC [Concomitant]
     Route: 065

REACTIONS (8)
  - BRADYCARDIA [None]
  - FALL [None]
  - HEAD INJURY [None]
  - HEART RATE IRREGULAR [None]
  - PALPITATIONS [None]
  - SICK SINUS SYNDROME [None]
  - TACHYCARDIA [None]
  - TRANSIENT ISCHAEMIC ATTACK [None]
